FAERS Safety Report 8119509-2 (Version None)
Quarter: 2012Q1

REPORT INFORMATION
  Report Type: 
  Country: None (occurrence: None)
  Receive Date: 20120207
  Receipt Date: 20120127
  Transmission Date: 20120608
  Serious: Yes (Hospitalization, Disabling)
  Sender: FDA-Public Use
  Company Number: PHHO2012US001740

PATIENT
  Sex: Male
  Weight: 82.993 kg

DRUGS (5)
  1. AMLODIPINE BESYLATE [Suspect]
  2. CARVEDILOL [Suspect]
  3. FUROSEMIDE [Suspect]
     Indication: CARDIAC FAILURE CONGESTIVE
  4. LOSARTAN POTASSIUM/HYDROCHLOROTHIAZIDE [Suspect]
  5. ALISKIREN [Suspect]
     Indication: CARDIOVASCULAR DISORDER
     Dosage: UNK

REACTIONS (14)
  - HUMERUS FRACTURE [None]
  - FALL [None]
  - LOSS OF CONSCIOUSNESS [None]
  - HAEMOGLOBIN DECREASED [None]
  - APHAGIA [None]
  - HEAD INJURY [None]
  - BLOOD CREATININE INCREASED [None]
  - BLISTER [None]
  - DECREASED APPETITE [None]
  - SYNCOPE [None]
  - UPPER LIMB FRACTURE [None]
  - IRON DEFICIENCY ANAEMIA [None]
  - BLOOD UREA INCREASED [None]
  - OXYGEN SATURATION DECREASED [None]
